FAERS Safety Report 11038583 (Version 2)
Quarter: 2015Q2

REPORT INFORMATION
  Report Type: Spontaneous
  Country: US (occurrence: US)
  Receive Date: 20150416
  Receipt Date: 20150602
  Transmission Date: 20150821
  Serious: Yes (Other)
  Sender: FDA-Public Use
  Company Number: US-PFIZER INC-2015125539

PATIENT
  Age: 63 Year
  Sex: Female
  Weight: 79 kg

DRUGS (4)
  1. VITAMIN B12 [Concomitant]
     Active Substance: CYANOCOBALAMIN
     Dosage: UNK MONTHLY
  2. SUTENT [Suspect]
     Active Substance: SUNITINIB MALATE
     Dosage: 37.5-50 MG/DAY FOR 2-3 WEEKS/MONTH)
     Route: 048
  3. SUTENT [Suspect]
     Active Substance: SUNITINIB MALATE
     Indication: NEUROENDOCRINE TUMOUR
     Dosage: (37.5MG CAPSULES ONE MONTH AND 50 MG ANOTHER MONTH FOR 28 DAY/2 WEEKS OFF,), CYCLIC
     Route: 048
     Dates: start: 201304
  4. SYNTHROID [Concomitant]
     Active Substance: LEVOTHYROXINE SODIUM
     Dosage: UNK

REACTIONS (19)
  - Cardiac failure [Unknown]
  - Haemorrhagic diathesis [Unknown]
  - Fluid overload [Unknown]
  - Retinal detachment [Unknown]
  - Oedema peripheral [Unknown]
  - Eye colour change [Unknown]
  - Decreased appetite [Unknown]
  - Vomiting [Unknown]
  - Diarrhoea [Unknown]
  - Dyspnoea [Unknown]
  - Swelling face [Unknown]
  - Ocular hyperaemia [Unknown]
  - Weight decreased [Unknown]
  - Oedema [Unknown]
  - Abdominal pain [Unknown]
  - Nausea [Unknown]
  - Hand-foot-and-mouth disease [Unknown]
  - Eye swelling [Unknown]
  - Skin discolouration [Unknown]
